FAERS Safety Report 12162734 (Version 1)
Quarter: 2016Q1

REPORT INFORMATION
  Report Type: Spontaneous
  Country: US (occurrence: None)
  Receive Date: 20160308
  Receipt Date: 20160308
  Transmission Date: 20160526
  Serious: Yes (Hospitalization)
  Sender: FDA-Public Use
  Company Number: None

PATIENT
  Age: 67 Year
  Sex: Female
  Weight: 68.6 kg

DRUGS (10)
  1. NICODERM CQ [Concomitant]
     Active Substance: NICOTINE
  2. ENOXAPARIN [Concomitant]
     Active Substance: ENOXAPARIN
  3. ECOTRIN [Suspect]
     Active Substance: ASPIRIN
     Indication: CORONARY ARTERY DISEASE
     Route: 048
  4. SYNTHROID [Concomitant]
     Active Substance: LEVOTHYROXINE SODIUM
  5. PROTONIX [Concomitant]
     Active Substance: PANTOPRAZOLE SODIUM
  6. NTG [Concomitant]
     Active Substance: NITROGLYCERIN
  7. LOPRESSOR [Concomitant]
     Active Substance: METOPROLOL TARTRATE
  8. ZOCOR [Concomitant]
     Active Substance: SIMVASTATIN
  9. PLAVIX [Suspect]
     Active Substance: CLOPIDOGREL BISULFATE
     Indication: CORONARY ARTERY DISEASE
     Route: 048
  10. LISINOPRIL. [Concomitant]
     Active Substance: LISINOPRIL

REACTIONS (3)
  - Post procedural haemorrhage [None]
  - Anaemia postoperative [None]
  - Haemostasis [None]

NARRATIVE: CASE EVENT DATE: 20151102
